FAERS Safety Report 16400394 (Version 5)
Quarter: 2019Q3

REPORT INFORMATION
  Report Type: Spontaneous
  Country: CN (occurrence: CN)
  Receive Date: 20190606
  Receipt Date: 20190912
  Transmission Date: 20191004
  Serious: Yes (Hospitalization)
  Sender: FDA-Public Use
  Company Number: CN-CELGENEUS-CHN-20190302681

PATIENT
  Age: 56 Year
  Sex: Male
  Weight: 78 kg

DRUGS (15)
  1. BGB-A317/TISLELIZUMAB [Suspect]
     Active Substance: TISLELIZUMAB
     Indication: LUNG SQUAMOUS CELL CARCINOMA STAGE IV
     Dosage: 200 MILLIGRAM, Q3WK (D1)
     Route: 041
     Dates: start: 20190117, end: 20190521
  2. METOCLOPRAMIDE DIHYDROCHLORIDE [Concomitant]
     Dosage: 10 MILLIGRAM
     Route: 030
     Dates: start: 20190219, end: 20190219
  3. ABRAXANE [Suspect]
     Active Substance: PACLITAXEL
     Indication: LUNG SQUAMOUS CELL CARCINOMA STAGE IV
     Dosage: 180 MILLIGRAM, D1, D8 AND D15
     Route: 041
     Dates: start: 20190117, end: 20190417
  4. DIPHENHYDRAMINE HYDROCHLORIDE. [Concomitant]
     Active Substance: DIPHENHYDRAMINE HYDROCHLORIDE
     Indication: ANTIALLERGIC THERAPY
     Dosage: 20 MILLIGRAM
     Route: 030
     Dates: start: 20190212, end: 20190212
  5. CARBOPLATIN. [Concomitant]
     Active Substance: CARBOPLATIN
     Indication: LUNG SQUAMOUS CELL CARCINOMA STAGE IV
     Dosage: 725 MILLIGRAM, Q3WK (D1)
     Route: 041
     Dates: start: 20190117, end: 20190417
  6. ZOLEDRONIC ACID [Concomitant]
     Active Substance: ZOLEDRONIC ACID
     Indication: METASTASES TO BONE
     Dosage: 4 MILLIGRAM, QD
     Route: 041
     Dates: start: 20190131, end: 20190131
  7. GLUCOSE + SODIUM CHLORIDE [Concomitant]
     Active Substance: DEXTROSE\SODIUM CHLORIDE
     Dosage: 10 MILLILITER
     Route: 030
     Dates: start: 20190212, end: 20190212
  8. CIMETIDINE [Concomitant]
     Active Substance: CIMETIDINE
     Indication: ACIDOSIS
     Dosage: 0.2 GRAM, QD
     Route: 041
     Dates: start: 20190212, end: 20190214
  9. TAMSULOSIN HYDROCHLORIDE. [Concomitant]
     Active Substance: TAMSULOSIN HYDROCHLORIDE
     Indication: BENIGN PROSTATIC HYPERPLASIA
     Dosage: 0.2 MILLIGRAM, QD
     Route: 048
     Dates: start: 20190213
  10. METOCLOPRAMIDE DIHYDROCHLORIDE [Concomitant]
     Indication: PROPHYLAXIS OF NAUSEA AND VOMITING
     Dosage: 10 MILLIGRAM, QD
     Route: 030
     Dates: start: 20190130, end: 20190130
  11. APREPITANT. [Concomitant]
     Active Substance: APREPITANT
     Indication: PROPHYLAXIS OF NAUSEA AND VOMITING
     Dosage: 1 GRAIN
     Route: 048
     Dates: start: 20190213, end: 20190214
  12. FINASTERIDE. [Concomitant]
     Active Substance: FINASTERIDE
     Indication: BENIGN PROSTATIC HYPERPLASIA
     Dosage: 5 MILLIGRAM, QD
     Route: 048
     Dates: start: 20190213
  13. GLUCOSE + SODIUM CHLORIDE [Concomitant]
     Active Substance: DEXTROSE\SODIUM CHLORIDE
     Indication: ANTIALLERGIC THERAPY
     Dosage: 10 MILLILITRE, QD
     Route: 030
     Dates: start: 20190131, end: 20190131
  14. ABRAXANE [Suspect]
     Active Substance: PACLITAXEL
     Route: 041
  15. METOCLOPRAMIDE DIHYDROCHLORIDE [Concomitant]
     Dosage: 10 MILLIGRAM, QD
     Route: 030
     Dates: start: 20190213, end: 20190213

REACTIONS (1)
  - Myocarditis [Recovered/Resolved]

NARRATIVE: CASE EVENT DATE: 20190227
